FAERS Safety Report 5392033-6 (Version None)
Quarter: 2007Q3

REPORT INFORMATION
  Report Type: 
  Country: None (occurrence: None)
  Receive Date: 20070720
  Receipt Date: 20070529
  Transmission Date: 20080115
  Serious: Yes (Other)
  Sender: FDA-Public Use
  Company Number: US-PURDUE-USA_2007_0027718

PATIENT
  Sex: Female
  Weight: 136 kg

DRUGS (3)
  1. OXYCONTIN [Suspect]
     Indication: DRUG USE FOR UNKNOWN INDICATION
     Dosage: 40 MG, TID
  2. INSULIN [Concomitant]
     Indication: DIABETES MELLITUS
     Dosage: UNK, UNK
  3. LASIX [Concomitant]
     Indication: OEDEMA

REACTIONS (4)
  - ATRIAL FIBRILLATION [None]
  - DRUG DEPENDENCE [None]
  - MENTAL DISORDER [None]
  - MUSCLE SPASMS [None]
